FAERS Safety Report 10305649 (Version 1)
Quarter: 2014Q3

REPORT INFORMATION
  Report Type: Spontaneous
  Country: US (occurrence: None)
  Receive Date: 20140711
  Receipt Date: 20140711
  Transmission Date: 20150326
  Serious: Yes (Other)
  Sender: FDA-Public Use
  Company Number: None

PATIENT
  Age: 41 Year
  Sex: Female
  Weight: 49.9 kg

DRUGS (1)
  1. BUTALBITAL ACETAMINOPHEN AND CAFFEINE [Suspect]
     Active Substance: ACETAMINOPHEN\BUTALBITAL\CAFFEINE
     Indication: HEADACHE
     Dosage: 1 AS NEEDED TAKEN BY MOUTH
     Route: 048
     Dates: start: 20140320, end: 20140610

REACTIONS (2)
  - Decreased appetite [None]
  - Blood glucose decreased [None]

NARRATIVE: CASE EVENT DATE: 20140709
